FAERS Safety Report 20851475 (Version 2)
Quarter: 2022Q2

REPORT INFORMATION
  Report Type: Spontaneous
  Country: AE (occurrence: AE)
  Receive Date: 20220519
  Receipt Date: 20220526
  Transmission Date: 20220721
  Serious: Yes (Hospitalization, Other)
  Sender: FDA-Public Use
  Company Number: AE-PFIZER INC-202101226450

PATIENT
  Age: 66 Year
  Sex: Female
  Weight: 78 kg

DRUGS (2)
  1. ENBREL [Suspect]
     Active Substance: ETANERCEPT
     Indication: Psoriasis
     Dosage: 50 MILLIGRAM, QWK
     Route: 058
     Dates: start: 20170430
  2. PANADOL [Concomitant]
     Active Substance: ACETAMINOPHEN

REACTIONS (1)
  - Tendon injury [Recovered/Resolved]

NARRATIVE: CASE EVENT DATE: 20210909
